FAERS Safety Report 25883069 (Version 1)
Quarter: 2025Q4

REPORT INFORMATION
  Report Type: Spontaneous
  Country: CN (occurrence: CN)
  Receive Date: 20251006
  Receipt Date: 20251006
  Transmission Date: 20260118
  Serious: Yes (Hospitalization)
  Sender: Kenvue
  Company Number: CN-KENVUE-20251001281

PATIENT

DRUGS (2)
  1. CHILDRENS MOTRIN [Suspect]
     Active Substance: IBUPROFEN
     Indication: Pyrexia
     Dosage: UNK; ADMINISTERED TWICE AFTER FEVER, INCREASE OF DOSE
     Route: 048
     Dates: start: 20250704, end: 202507
  2. CEFTEZOLE [Concomitant]
     Active Substance: CEFTEZOLE
     Indication: Product used for unknown indication
     Dosage: UNK
     Route: 065
     Dates: start: 202507, end: 202507

REACTIONS (2)
  - Inappropriate schedule of product administration [Unknown]
  - Rash [Recovering/Resolving]

NARRATIVE: CASE EVENT DATE: 20250704
